FAERS Safety Report 15130148 (Version 3)
Quarter: 2018Q3

REPORT INFORMATION
  Report Type: Spontaneous
  Country: JP (occurrence: JP)
  Receive Date: 20180711
  Receipt Date: 20180720
  Transmission Date: 20181010
  Serious: Yes (Hospitalization, Other)
  Sender: FDA-Public Use
  Company Number: JP-SA-2018SA184898

PATIENT
  Age: 78 Year
  Sex: Female
  Weight: 35 kg

DRUGS (1)
  1. CEREZYME [Suspect]
     Active Substance: IMIGLUCERASE
     Indication: GAUCHER^S DISEASE
     Dosage: UNK MG
     Route: 041

REACTIONS (2)
  - Fall [None]
  - Femoral neck fracture [Recovered/Resolved with Sequelae]

NARRATIVE: CASE EVENT DATE: 201805
